FAERS Safety Report 17119818 (Version 1)
Quarter: 2019Q4

REPORT INFORMATION
  Report Type: Spontaneous
  Country: US (occurrence: US)
  Receive Date: 20191113
  Receipt Date: 20191113
  Transmission Date: 20200122
  Serious: Yes (Hospitalization)
  Sender: FDA-Public Use
  Company Number: None

PATIENT
  Age: 66 Year
  Sex: Female

DRUGS (1)
  1. TREMFYA [Suspect]
     Active Substance: GUSELKUMAB
     Indication: PSORIASIS
     Dosage: OTHER FREQUENCY: QOM
     Route: 058
     Dates: start: 20180502

REACTIONS (3)
  - Psoriasis [None]
  - Skin laceration [None]
  - Infection [None]

NARRATIVE: CASE EVENT DATE: 20191019
